FAERS Safety Report 18007277 (Version 3)
Quarter: 2020Q4

REPORT INFORMATION
  Report Type: Spontaneous
  Country: AU (occurrence: AU)
  Receive Date: 20200710
  Receipt Date: 20201217
  Transmission Date: 20210113
  Serious: Yes (Hospitalization)
  Sender: FDA-Public Use
  Company Number: AU-VERTEX PHARMACEUTICALS-2020-014443

PATIENT
  Age: 6 Year
  Sex: Female
  Weight: 19.3 kg

DRUGS (3)
  1. CLOFAZIMINE [Concomitant]
     Active Substance: CLOFAZIMINE
  2. ORKAMBI [Suspect]
     Active Substance: IVACAFTOR\LUMACAFTOR
     Dosage: TABLETS
     Route: 048
     Dates: start: 202007
  3. ORKAMBI [Suspect]
     Active Substance: IVACAFTOR\LUMACAFTOR
     Indication: CYSTIC FIBROSIS
     Dosage: UNK
     Route: 048
     Dates: start: 201912, end: 202001

REACTIONS (5)
  - General physical health deterioration [Unknown]
  - Pseudomonas infection [Unknown]
  - Mycobacterium avium complex infection [Unknown]
  - Pulmonary function test decreased [Not Recovered/Not Resolved]
  - Lung disorder [Not Recovered/Not Resolved]
